FAERS Safety Report 15791655 (Version 1)
Quarter: 2019Q1

REPORT INFORMATION
  Report Type: Spontaneous
  Country: US (occurrence: US)
  Receive Date: 20190105
  Receipt Date: 20190105
  Transmission Date: 20190417
  Serious: Yes (Hospitalization, Other)
  Sender: FDA-Public Use
  Company Number: US-AUROBINDO-AUR-APL-2018-064085

PATIENT
  Age: 42 Year
  Sex: Male

DRUGS (2)
  1. ALPRAZOLAM. [Suspect]
     Active Substance: ALPRAZOLAM
     Indication: PRODUCT USED FOR UNKNOWN INDICATION
     Dosage: UNK
     Route: 065
  2. TIANEPTINE [Interacting]
     Active Substance: TIANEPTINE
     Indication: BACK PAIN

REACTIONS (9)
  - Drug interaction [Recovered/Resolved]
  - Pneumonia aspiration [Recovered/Resolved]
  - Unresponsive to stimuli [Recovered/Resolved]
  - Intentional product misuse [Recovered/Resolved]
  - Intentional overdose [Recovered/Resolved]
  - Respiratory depression [Recovered/Resolved]
  - Drug dependence [Recovered/Resolved]
  - Euphoric mood [Recovered/Resolved]
  - Drug abuse [Recovered/Resolved]
